FAERS Safety Report 6814918-3 (Version None)
Quarter: 2010Q3

REPORT INFORMATION
  Report Type: 
  Country: None (occurrence: None)
  Receive Date: 20100702
  Receipt Date: 20100616
  Transmission Date: 20110219
  Serious: Yes (Death, Hospitalization)
  Sender: FDA-Public Use
  Company Number: AZ-ROCHE-711807

PATIENT
  Age: 20 Year
  Sex: Female

DRUGS (1)
  1. OSELTAMIVIR [Suspect]
     Indication: AVIAN INFLUENZA
     Route: 065
     Dates: start: 20060301

REACTIONS (3)
  - INFLUENZA [None]
  - PHARYNGITIS [None]
  - PNEUMONIA [None]
